FAERS Safety Report 17709379 (Version 3)
Quarter: 2020Q2

REPORT INFORMATION
  Report Type: Spontaneous
  Country: RU (occurrence: RU)
  Receive Date: 20200427
  Receipt Date: 20200519
  Transmission Date: 20200714
  Serious: Yes (Other)
  Sender: FDA-Public Use
  Company Number: RU-EMD SERONO-9159231

PATIENT
  Age: 64 Year
  Sex: Male

DRUGS (6)
  1. GLUCOPHAGE LONG [Suspect]
     Active Substance: METFORMIN HYDROCHLORIDE
     Dosage: DOSE REINTODUCED
     Route: 048
     Dates: start: 202003
  2. LODOZ [Concomitant]
     Active Substance: BISOPROLOL FUMARATE\HYDROCHLOROTHIAZIDE
     Indication: BLOOD PRESSURE ABNORMAL
     Dosage: (THE PATIENT DID NOT REMEMBER THE EXACT DATES)
     Dates: start: 2017
  3. NASIVIN                            /00070002/ [Concomitant]
     Indication: RHINORRHOEA
     Dates: start: 1996, end: 2019
  4. NASIVIN                            /00070002/ [Concomitant]
     Indication: NASOPHARYNGITIS
  5. AMARYL [Concomitant]
     Active Substance: GLIMEPIRIDE
     Indication: TYPE 2 DIABETES MELLITUS
  6. GLUCOPHAGE LONG [Suspect]
     Active Substance: METFORMIN HYDROCHLORIDE
     Indication: TYPE 2 DIABETES MELLITUS
     Route: 048

REACTIONS (2)
  - Diabetes mellitus inadequate control [Recovered/Resolved]
  - Therapeutic response decreased [Recovered/Resolved]
